FAERS Safety Report 9517121 (Version 1)
Quarter: 2013Q3

REPORT INFORMATION
  Report Type: Spontaneous
  Country: GB (occurrence: GB)
  Receive Date: 20130911
  Receipt Date: 20130911
  Transmission Date: 20140515
  Serious: Yes (Other)
  Sender: FDA-Public Use
  Company Number: GB-TEVA-431169ISR

PATIENT
  Age: 47 Year
  Sex: Female
  Weight: 62.4 kg

DRUGS (15)
  1. OFLOXACIN [Suspect]
     Dates: start: 20130607
  2. ACICLOVIR [Concomitant]
     Dates: start: 20130501, end: 20130703
  3. CODEINE PHOSPHATE [Concomitant]
     Dates: start: 20130501, end: 20130723
  4. DIAZEPAM [Concomitant]
     Dates: start: 20130501, end: 20130703
  5. MIRTAZAPINE [Concomitant]
     Dates: start: 20130501
  6. TRAMADOL [Concomitant]
     Dates: start: 20130501, end: 20130724
  7. ZOLPIDEM [Concomitant]
     Dates: start: 20130501, end: 20130806
  8. KAMILLOSAN [Concomitant]
     Dates: start: 20130605, end: 20130703
  9. KAOLIN AND MORPHINE [Concomitant]
     Dates: start: 20130605, end: 20130728
  10. CLOTRIMAZOLE [Concomitant]
     Dates: start: 20130607, end: 20130710
  11. LORAZEPAM [Concomitant]
     Dates: start: 20130607
  12. ERYTHROMYCIN [Concomitant]
     Dates: start: 20130612, end: 20130619
  13. METOCLOPRAMIDE [Concomitant]
     Dates: start: 20130621, end: 20130630
  14. OMEPRAZOLE [Concomitant]
     Dates: start: 20130621, end: 20130719
  15. FLUCONAZOLE [Concomitant]
     Dates: start: 20130624, end: 20130702

REACTIONS (3)
  - Alopecia [Not Recovered/Not Resolved]
  - Fatigue [Recovering/Resolving]
  - Suicidal ideation [Recovering/Resolving]
